FAERS Safety Report 4649682-X (Version None)
Quarter: 2005Q2

REPORT INFORMATION
  Report Type: 
  Country: None (occurrence: None)
  Receive Date: 20050502
  Receipt Date: 20050215
  Transmission Date: 20051028
  Serious: Yes (Other)
  Sender: FDA-Public Use
  Company Number: 200511209US

PATIENT
  Age: 30 Year
  Sex: Female

DRUGS (2)
  1. CLOMIPHENE CITRATE [Suspect]
     Indication: OVULATION INDUCTION
     Dates: start: 20021002, end: 20021006
  2. PRENATAL VITAMINS [Concomitant]
     Dosage: DOSE: UNK

REACTIONS (2)
  - DERMATOFIBROSARCOMA [None]
  - SWELLING [None]
